FAERS Safety Report 12636155 (Version 2)
Quarter: 2017Q4

REPORT INFORMATION
  Report Type: Spontaneous
  Country: US (occurrence: US)
  Receive Date: 20160809
  Receipt Date: 20171222
  Transmission Date: 20180320
  Serious: Yes (Other)
  Sender: FDA-Public Use
  Company Number: US-IPCA LABORATORIES LIMITED-IPC201607-000656

PATIENT
  Age: 1 Month
  Sex: Male

DRUGS (2)
  1. PROPRANOLOL HYDROCHLORIDE TABLETS, USP [Suspect]
     Active Substance: PROPRANOLOL HYDROCHLORIDE
     Indication: INFANTILE HAEMANGIOMA
     Dosage: 2.2,MG/KG,ONE DAY
     Route: 048
  2. PROPRANOLOL HYDROCHLORIDE TABLETS, USP [Suspect]
     Active Substance: PROPRANOLOL HYDROCHLORIDE
     Dosage: 1,MG/KG,ONE DAY
     Route: 048

REACTIONS (3)
  - Off label use [Unknown]
  - Cyanosis neonatal [Unknown]
  - Cyanosis [Unknown]
